FAERS Safety Report 24636717 (Version 1)
Quarter: 2024Q4

REPORT INFORMATION
  Report Type: Spontaneous
  Country: GB (occurrence: GB)
  Receive Date: 20241119
  Receipt Date: 20241119
  Transmission Date: 20250115
  Serious: Yes (Other)
  Sender: MYLAN
  Company Number: GB-MYLANLABS-2024M1064885

PATIENT
  Age: 42 Year
  Sex: Male
  Weight: 87 kg

DRUGS (5)
  1. CLOZARIL [Suspect]
     Active Substance: CLOZAPINE
     Indication: Schizophrenia
     Dosage: 250 MILLIGRAM, QD (ONCE DAILY AT NIGHT)
     Route: 048
     Dates: start: 20030324
  2. CLOZARIL [Suspect]
     Active Substance: CLOZAPINE
     Dosage: 225 MILLIGRAM, QD (AT NIGHT)
     Route: 048
     Dates: start: 20240718
  3. CLOZAPINE [Suspect]
     Active Substance: CLOZAPINE
     Indication: Schizophrenia
     Dosage: 1 DOSAGE FORM, QD (ONE TO BE TAKEN AT NIGHT (TOTAL DAILY DOSE 225MG))
     Route: 065
     Dates: start: 20240802
  4. CLOZAPINE [Suspect]
     Active Substance: CLOZAPINE
     Indication: Schizophrenia
     Dosage: 2 DOSAGE FORM, QD (TWO TO BE TAKEN AT NIGHT (TOTAL DAILY DOSE 225MG))
     Route: 065
     Dates: start: 20230427
  5. GAVISCON ADVANCE PEPPERMINT [Concomitant]
     Indication: Dyspepsia
     Dosage: 5 MILLILITER, PRN (1-2 5ML SPOONS WHEN REQUIRED)
     Route: 048
     Dates: start: 20240619

REACTIONS (4)
  - Thrombocytopenia [Recovering/Resolving]
  - Mean cell haemoglobin increased [Unknown]
  - Platelet count decreased [Not Recovered/Not Resolved]
  - Blood creatinine increased [Unknown]

NARRATIVE: CASE EVENT DATE: 20160216
